FAERS Safety Report 9417469 (Version 1)
Quarter: 2013Q3

REPORT INFORMATION
  Report Type: Spontaneous
  Country: US (occurrence: US)
  Receive Date: 20130724
  Receipt Date: 20130724
  Transmission Date: 20140515
  Serious: No
  Sender: FDA-Public Use
  Company Number: US-BRISTOL-MYERS SQUIBB COMPANY-18777813

PATIENT
  Age: 80 Year
  Sex: Female

DRUGS (2)
  1. ELIQUIS [Suspect]
     Dosage: REDUCED TO 5MG QD
  2. CARDIZEM [Suspect]

REACTIONS (15)
  - Dizziness [Unknown]
  - Feeling abnormal [Unknown]
  - Arthralgia [Unknown]
  - Constipation [Unknown]
  - Abdominal pain upper [Unknown]
  - Gait disturbance [Unknown]
  - Chest pain [Unknown]
  - Abdominal distension [Unknown]
  - Urine output increased [Unknown]
  - Malaise [Unknown]
  - Fall [Unknown]
  - Vision blurred [Unknown]
  - Peripheral nerve lesion [Unknown]
  - Spinal disorder [Unknown]
  - Chronic obstructive pulmonary disease [Unknown]
